FAERS Safety Report 14888816 (Version 3)
Quarter: 2018Q4

REPORT INFORMATION
  Report Type: Report from Study
  Country: None (occurrence: US)
  Receive Date: 20180513
  Receipt Date: 20181204
  Transmission Date: 20190204
  Serious: Yes (Hospitalization)
  Sender: FDA-Public Use
  Company Number: US-ABBVIE-18K-163-2352647-00

PATIENT
  Age: 48 Year
  Sex: Female
  Weight: 102.15 kg

DRUGS (1)
  1. HUMIRA [Suspect]
     Active Substance: ADALIMUMAB
     Indication: RHEUMATOID ARTHRITIS
     Route: 058

REACTIONS (17)
  - Tongue disorder [Unknown]
  - Tongue discolouration [Unknown]
  - Feeling hot [Recovered/Resolved]
  - Diabetes mellitus [Not Recovered/Not Resolved]
  - Malaise [Unknown]
  - Tongue dry [Unknown]
  - Abdominal discomfort [Unknown]
  - Flushing [Recovered/Resolved]
  - Headache [Unknown]
  - Femur fracture [Recovering/Resolving]
  - Swollen tongue [Unknown]
  - Pruritus generalised [Unknown]
  - Asthenia [Unknown]
  - Fatigue [Unknown]
  - Abdominal pain [Not Recovered/Not Resolved]
  - Road traffic accident [Unknown]
  - Migraine [Not Recovered/Not Resolved]

NARRATIVE: CASE EVENT DATE: 2018
